FAERS Safety Report 21905062 (Version 1)
Quarter: 2023Q1

REPORT INFORMATION
  Report Type: Spontaneous
  Country: US (occurrence: US)
  Receive Date: 20230124
  Receipt Date: 20230124
  Transmission Date: 20230418
  Serious: Yes (Other)
  Sender: FDA-Public Use
  Company Number: US-drreddys-LIT/USA/23/0160142

PATIENT

DRUGS (3)
  1. BORTEZOMIB [Suspect]
     Active Substance: BORTEZOMIB
     Indication: Plasma cell myeloma
     Dosage: ON DAYS 1, 4, 8 AND 11 (SCHEDULED TO BE ADMINISTERED FOR 4 CYCLES) 21 DAYS CYCLE
  2. DEXAMETHASONE [Suspect]
     Active Substance: DEXAMETHASONE
     Indication: Plasma cell myeloma
     Dosage: ON DAYS 1, 8, 15, 22 (SCHEDULED TO BE ADMINISTERED FOR 4 CYCLES) 21 DAY CYCLE
  3. CYCLOPHOSPHAMIDE [Suspect]
     Active Substance: CYCLOPHOSPHAMIDE
     Indication: Plasma cell myeloma
     Dosage: ON DAYS 1, 8, AND 15,(SCHEDULED TO BE ADMINISTERED FOR 4 CYCLES) 21 DAY CYCLE

REACTIONS (2)
  - Plasma cell myeloma [Unknown]
  - Product use in unapproved indication [Unknown]
